FAERS Safety Report 6398200-7 (Version None)
Quarter: 2009Q3

REPORT INFORMATION
  Report Type: 
  Country: None (occurrence: None)
  Receive Date: 20090929
  Receipt Date: 20090914
  Transmission Date: 20100115
  Serious: Yes (Death)
  Sender: FDA-Public Use
  Company Number: THYM-1001215

PATIENT
  Age: 39 Year
  Sex: Male
  Weight: 63 kg

DRUGS (1)
  1. THYMOGLOBULIN [Suspect]
     Indication: ACUTE GRAFT VERSUS HOST DISEASE
     Dosage: 1.25 MG/KG, QD, INTRAVENOUS
     Route: 042
     Dates: start: 20090825, end: 20090829

REACTIONS (1)
  - DEATH [None]
